FAERS Safety Report 12960148 (Version 2)
Quarter: 2016Q4

REPORT INFORMATION
  Report Type: Spontaneous
  Country: CH (occurrence: CH)
  Receive Date: 20161121
  Receipt Date: 20161121
  Transmission Date: 20170207
  Serious: Yes (Life-Threatening, Hospitalization)
  Sender: FDA-Public Use
  Company Number: CH-SA-2016SA209849

PATIENT
  Age: 55 Year
  Sex: Male
  Weight: 107 kg

DRUGS (27)
  1. PLAVIX [Suspect]
     Active Substance: CLOPIDOGREL BISULFATE
     Indication: PERIPHERAL ARTERIAL OCCLUSIVE DISEASE
     Route: 048
  2. SPIRICORT [Concomitant]
     Active Substance: PREDNISOLONE
     Indication: RENAL TRANSPLANT
     Route: 048
  3. KCL [Concomitant]
     Active Substance: POTASSIUM CHLORIDE
     Route: 048
  4. SANDIMMUN NEORAL [Interacting]
     Active Substance: CYCLOSPORINE
     Indication: RENAL TRANSPLANT
     Route: 048
  5. SOLU-MEDROL [Interacting]
     Active Substance: METHYLPREDNISOLONE SODIUM SUCCINATE
     Indication: FOOT OPERATION
     Dosage: FORM- VIAL
     Route: 042
     Dates: start: 20161021, end: 20161021
  6. PALLADON [Concomitant]
     Active Substance: HYDROMORPHONE
     Dosage: 2.6 MG
     Route: 048
  7. ZYLORIC [Concomitant]
     Active Substance: ALLOPURINOL
     Route: 048
  8. CO-AMOXI [Concomitant]
     Active Substance: AMOXICILLIN\CLAVULANATE POTASSIUM
     Dosage: SOLUBLE POWDER
  9. TRESIBA [Concomitant]
     Active Substance: INSULIN DEGLUDEC
     Route: 058
  10. NEURONTIN [Concomitant]
     Active Substance: GABAPENTIN
     Route: 048
  11. PRIMPERAN [Concomitant]
     Active Substance: METOCLOPRAMIDE HYDROCHLORIDE
     Dosage: AMPOULES
     Route: 040
  12. NOVORAPID [Concomitant]
     Active Substance: INSULIN ASPART
     Dosage: VIALS
     Route: 058
  13. ISOPTIN [Interacting]
     Active Substance: VERAPAMIL HYDROCHLORIDE
     Indication: ATRIAL FIBRILLATION
     Route: 048
     Dates: end: 20161021
  14. MAGNESIOCARD [Concomitant]
     Active Substance: MAGNESIUM ASPARTATE HYDROCHLORIDE
     Route: 048
  15. BELOC ZOK [Interacting]
     Active Substance: METOPROLOL SUCCINATE
     Indication: ATRIAL FIBRILLATION
     Route: 048
  16. ATORVASTATIN [Interacting]
     Active Substance: ATORVASTATIN
     Route: 048
     Dates: start: 20161013
  17. TOREM [Concomitant]
     Active Substance: TORSEMIDE
     Route: 048
  18. CELLCEPT [Concomitant]
     Active Substance: MYCOPHENOLATE MOFETIL\MYCOPHENOLATE MOFETIL HYDROCHLORIDE
     Indication: RENAL TRANSPLANT
     Route: 048
  19. TRITTICO [Concomitant]
     Active Substance: TRAZODONE HYDROCHLORIDE
     Route: 048
  20. PANTOPRAZOL [Concomitant]
     Active Substance: PANTOPRAZOLE SODIUM
     Dosage: ENTERIC- COATED TABLET
     Route: 048
  21. ROCALTROL [Concomitant]
     Active Substance: CALCITRIOL
     Route: 048
  22. MARCOUMAR [Concomitant]
     Active Substance: PHENPROCOUMON
     Indication: ATRIAL FIBRILLATION
     Route: 048
  23. FENTANYL. [Concomitant]
     Active Substance: FENTANYL
     Dosage: AMPOULES INTRAVENOUS
     Route: 040
  24. STILNOX [Concomitant]
     Active Substance: ZOLPIDEM TARTRATE
     Route: 048
  25. ALDACTONE [Concomitant]
     Active Substance: SPIRONOLACTONE
     Route: 048
  26. BARACLUDE [Concomitant]
     Active Substance: ENTECAVIR
     Indication: HEPATITIS B
     Route: 048
  27. PALLADON [Concomitant]
     Active Substance: HYDROMORPHONE
     Dosage: 8 MG
     Route: 048

REACTIONS (5)
  - Atrioventricular block complete [Unknown]
  - Cardiac pacemaker insertion [Unknown]
  - Cardiogenic shock [Recovered/Resolved]
  - Endotracheal intubation [Recovered/Resolved]
  - Drug interaction [Recovered/Resolved]

NARRATIVE: CASE EVENT DATE: 201610
